FAERS Safety Report 25728030 (Version 2)
Quarter: 2025Q3

REPORT INFORMATION
  Report Type: Spontaneous
  Country: US (occurrence: US)
  Receive Date: 20250826
  Receipt Date: 20250911
  Transmission Date: 20251020
  Serious: No
  Sender: BAUSCH AND LOMB
  Company Number: US-BAUSCH-BH-2025-016515

PATIENT
  Age: 71 Year
  Sex: Male

DRUGS (1)
  1. JUBLIA [Suspect]
     Active Substance: EFINACONAZOLE
     Indication: Onychomycosis
     Route: 061

REACTIONS (5)
  - Onychoclasis [Unknown]
  - Nail discolouration [Unknown]
  - Drug ineffective [Unknown]
  - Product use issue [Unknown]
  - Insurance issue [Unknown]
